FAERS Safety Report 4625761-8 (Version None)
Quarter: 2005Q2

REPORT INFORMATION
  Report Type: 
  Country: None (occurrence: None)
  Receive Date: 20050404
  Receipt Date: 20050323
  Transmission Date: 20051028
  Serious: Yes (Other)
  Sender: FDA-Public Use
  Company Number: PHBS2005JP04370

PATIENT
  Sex: Female

DRUGS (7)
  1. WARFARIN SODIUM [Suspect]
     Route: 048
  2. DIGOXIN [Suspect]
     Route: 048
  3. VASOLAN [Suspect]
  4. NITOROL [Suspect]
     Route: 048
  5. PRIMPERAN TAB [Suspect]
  6. LOPRESSOR [Suspect]
     Route: 048
  7. FERROMIA [Suspect]

REACTIONS (1)
  - PLATELET COUNT DECREASED [None]
